FAERS Safety Report 12992614 (Version 3)
Quarter: 2016Q4

REPORT INFORMATION
  Report Type: Spontaneous
  Country: US (occurrence: US)
  Receive Date: 20161202
  Receipt Date: 20161213
  Transmission Date: 20170207
  Serious: No
  Sender: FDA-Public Use
  Company Number: US-BIOGEN-2016BI00323139

PATIENT
  Sex: Female

DRUGS (1)
  1. AVONEX [Suspect]
     Active Substance: INTERFERON BETA-1A
     Indication: MULTIPLE SCLEROSIS
     Route: 065
     Dates: start: 20140716

REACTIONS (5)
  - Visual acuity reduced [Not Recovered/Not Resolved]
  - Memory impairment [Unknown]
  - Headache [Unknown]
  - Back disorder [Unknown]
  - Gait disturbance [Unknown]
